FAERS Safety Report 8789297 (Version 1)
Quarter: 2012Q4

REPORT INFORMATION
  Report Type: Spontaneous
  Country: US (occurrence: None)
  Receive Date: 20120910
  Receipt Date: 20120910
  Transmission Date: 20130627
  Serious: Yes (Other)
  Sender: FDA-Public Use
  Company Number: None

PATIENT
  Age: 23 Year
  Sex: Female
  Weight: 75.75 kg

DRUGS (1)
  1. METOCLOPRAMIDE [Suspect]
     Indication: GASTROINTESTINAL DISORDER
     Route: 048
     Dates: start: 20120731, end: 20120802

REACTIONS (7)
  - Drug interaction [None]
  - Restless legs syndrome [None]
  - Energy increased [None]
  - Pain in jaw [None]
  - Mastication disorder [None]
  - Dyskinesia [None]
  - Dyskinesia [None]
